FAERS Safety Report 9130332 (Version 1)
Quarter: 2013Q1

REPORT INFORMATION
  Report Type: Spontaneous
  Country: GB (occurrence: GB)
  Receive Date: 20130228
  Receipt Date: 20130228
  Transmission Date: 20140127
  Serious: Yes (Other)
  Sender: FDA-Public Use
  Company Number: PHFR2004GB01482

PATIENT
  Age: 33 None
  Sex: Male

DRUGS (1)
  1. CLOZARIL [Suspect]
     Indication: SCHIZOPHRENIA
     Route: 048
     Dates: start: 20021021, end: 20040315

REACTIONS (3)
  - Pneumonia [Unknown]
  - Neutrophil count increased [Unknown]
  - White blood cell count increased [Unknown]
